FAERS Safety Report 6173306-6 (Version None)
Quarter: 2009Q2

REPORT INFORMATION
  Report Type: 
  Country: None (occurrence: None)
  Receive Date: 20090430
  Receipt Date: 20090324
  Transmission Date: 20091009
  Serious: No
  Sender: FDA-Public Use
  Company Number: GB-AVENTIS-200910214GDDC

PATIENT
  Age: 24 Year
  Sex: Female

DRUGS (9)
  1. ARAVA [Suspect]
     Dosage: DOSE: UNK
  2. SALBUTAMOL [Suspect]
     Indication: ASTHMA
     Dosage: DOSE: UNK
     Route: 055
  3. SALMETEROL [Suspect]
     Indication: ASTHMA
     Dosage: DOSE: UNK
     Route: 055
  4. BECLOMETASONE [Suspect]
     Indication: ASTHMA
     Dosage: DOSE: UNK
     Route: 055
  5. ZOMITRIPTAN [Suspect]
     Indication: MIGRAINE
     Route: 048
  6. SIMVASTATIN [Suspect]
     Route: 048
     Dates: end: 20081201
  7. OMEPRAZOLE [Suspect]
     Route: 048
     Dates: end: 20081201
  8. EZETIMIBE [Suspect]
     Dates: end: 20081201
  9. DICLOFENAC [Concomitant]
     Route: 065

REACTIONS (1)
  - PATERNAL DRUGS AFFECTING FOETUS [None]
